FAERS Safety Report 4969657-0 (Version None)
Quarter: 2006Q2

REPORT INFORMATION
  Report Type: 
  Country: None (occurrence: None)
  Receive Date: 20060411
  Receipt Date: 20060404
  Transmission Date: 20061013
  Serious: Yes (Hospitalization)
  Sender: FDA-Public Use
  Company Number: FR-BOEHRINGER INGELHEIM PHARMACEUTICALS, INC.-2006-FF-00265FF

PATIENT
  Age: 42 Year
  Sex: Male

DRUGS (2)
  1. APTIVUS [Suspect]
     Indication: HIV INFECTION
     Route: 048
     Dates: start: 20060201, end: 20060201
  2. ANTIRETROVIRAL DRUGS [Concomitant]
     Indication: HIV INFECTION

REACTIONS (4)
  - EPISTAXIS [None]
  - PLATELET COUNT DECREASED [None]
  - PURPURA [None]
  - THROMBOCYTOPENIA [None]
